FAERS Safety Report 25068948 (Version 2)
Quarter: 2025Q1

REPORT INFORMATION
  Report Type: Spontaneous
  Country: US (occurrence: US)
  Receive Date: 20250312
  Receipt Date: 20250312
  Transmission Date: 20250409
  Serious: Yes (Hospitalization, Disabling, Other)
  Sender: GILEAD
  Company Number: US-GILEAD-2025-0706410

PATIENT
  Age: 63 Year
  Sex: Male

DRUGS (1)
  1. VEKLURY [Suspect]
     Active Substance: REMDESIVIR
     Indication: COVID-19
     Route: 042
     Dates: start: 20211214

REACTIONS (18)
  - Disability [Unknown]
  - Cerebrovascular accident [Unknown]
  - Coma [Unknown]
  - Endotracheal intubation [Unknown]
  - Hemiplegia [Unknown]
  - Pneumothorax [Unknown]
  - Cardiac arrest [Unknown]
  - Blindness [Unknown]
  - Head injury [Unknown]
  - Visual field defect [Unknown]
  - Nephropathy [Unknown]
  - Extraskeletal ossification [Unknown]
  - Arthralgia [Unknown]
  - Chondropathy [Unknown]
  - Joint range of motion decreased [Unknown]
  - Lung opacity [Unknown]
  - Weight decreased [Unknown]
  - Recalled product [Unknown]

NARRATIVE: CASE EVENT DATE: 20211217
